FAERS Safety Report 13519829 (Version 1)
Quarter: 2017Q2

REPORT INFORMATION
  Report Type: Spontaneous
  Country: US (occurrence: US)
  Receive Date: 20170506
  Receipt Date: 20170506
  Transmission Date: 20170830
  Serious: No
  Sender: FDA-Public Use
  Company Number: US-ASTRAZENECA-2017SE45051

PATIENT
  Age: 30229 Day
  Sex: Female
  Weight: 60 kg

DRUGS (6)
  1. FASLODEX [Suspect]
     Active Substance: FULVESTRANT
     Indication: BREAST CANCER STAGE IV
     Dosage: 250 MG
     Route: 030
     Dates: start: 20170412
  2. VALIUM [Concomitant]
     Active Substance: DIAZEPAM
  3. MIRALAX [Concomitant]
     Active Substance: POLYETHYLENE GLYCOL 3350
     Route: 048
  4. TRASTUZUMAB [Concomitant]
     Active Substance: TRASTUZUMAB
  5. CALCIUM PLUS VITAMIN D [Concomitant]
     Active Substance: CALCIUM\VITAMIN D
     Route: 048
  6. ONDANSETRON [Concomitant]
     Active Substance: ONDANSETRON
     Indication: NAUSEA
     Route: 048

REACTIONS (5)
  - Paraesthesia oral [Unknown]
  - Cough [Unknown]
  - Feeling abnormal [Unknown]
  - Throat irritation [Unknown]
  - Off label use [Unknown]

NARRATIVE: CASE EVENT DATE: 20170426
